FAERS Safety Report 11087773 (Version 4)
Quarter: 2015Q3

REPORT INFORMATION
  Report Type: Spontaneous
  Country: US (occurrence: US)
  Receive Date: 20150504
  Receipt Date: 20150720
  Transmission Date: 20151125
  Serious: Yes (Other)
  Sender: FDA-Public Use
  Company Number: US-GILEAD-2015-0151466

PATIENT
  Age: 70 Year
  Sex: Male

DRUGS (15)
  1. HARVONI [Suspect]
     Active Substance: LEDIPASVIR\SOFOSBUVIR
     Indication: PRODUCT USED FOR UNKNOWN INDICATION
     Route: 065
  2. ALLOPURINOL. [Concomitant]
     Active Substance: ALLOPURINOL
  3. ERGOCALCIFEROL. [Concomitant]
     Active Substance: ERGOCALCIFEROL
  4. ZESTRIL [Concomitant]
     Active Substance: LISINOPRIL
  5. PRILOSEC [Concomitant]
     Active Substance: OMEPRAZOLE MAGNESIUM
  6. VITAMIN B-1 [Concomitant]
  7. NORVASC [Concomitant]
     Active Substance: AMLODIPINE BESYLATE
  8. HYDROCHLOROTHIAZIDE. [Concomitant]
     Active Substance: HYDROCHLOROTHIAZIDE
  9. ATROVENT [Concomitant]
     Active Substance: IPRATROPIUM BROMIDE
  10. CENTRUM SILVER                     /02363801/ [Concomitant]
     Active Substance: VITAMINS
  11. BUMEX [Concomitant]
     Active Substance: BUMETANIDE
  12. DOXAZOSIN [Concomitant]
     Active Substance: DOXAZOSIN\DOXAZOSIN MESYLATE
  13. MIRAPEX [Concomitant]
     Active Substance: PRAMIPEXOLE DIHYDROCHLORIDE
  14. LOPRESSOR [Concomitant]
     Active Substance: METOPROLOL TARTRATE
  15. ACETAMINOPHEN. [Concomitant]
     Active Substance: ACETAMINOPHEN

REACTIONS (1)
  - Glomerular filtration rate decreased [Unknown]
